FAERS Safety Report 5129649-8 (Version None)
Quarter: 2006Q4

REPORT INFORMATION
  Report Type: 
  Country: None (occurrence: None)
  Receive Date: 20061018
  Receipt Date: 20061005
  Transmission Date: 20070319
  Serious: Yes (Death)
  Sender: FDA-Public Use
  Company Number: US-ROCHE-466418

PATIENT
  Age: 41 Year
  Sex: Female
  Weight: 112.5 kg

DRUGS (5)
  1. KLONOPIN [Suspect]
     Indication: BIPOLAR DISORDER
     Route: 048
     Dates: start: 20060415, end: 20060504
  2. METHADONE [Interacting]
     Indication: BIPOLAR DISORDER
     Route: 065
     Dates: start: 20040615, end: 20060504
  3. SEROQUEL [Interacting]
     Indication: BIPOLAR DISORDER
     Route: 065
     Dates: end: 20060504
  4. LITHIUM CARBONATE [Concomitant]
     Indication: BIPOLAR DISORDER
     Dates: end: 20060504
  5. PREVACID [Concomitant]
     Dates: end: 20060504

REACTIONS (7)
  - AFFECT LABILITY [None]
  - AGGRESSION [None]
  - ANXIETY [None]
  - DRUG INTERACTION [None]
  - DRUG TOXICITY [None]
  - HYPOMANIA [None]
  - SOMNOLENCE [None]
